FAERS Safety Report 4842709-1 (Version None)
Quarter: 2005Q4

REPORT INFORMATION
  Report Type: 
  Country: None (occurrence: None)
  Receive Date: 20051201
  Receipt Date: 20020516
  Transmission Date: 20060501
  Serious: Yes (Disabling)
  Sender: FDA-Public Use
  Company Number: US-MERCK-0205USA02080

PATIENT
  Age: 48 Year
  Sex: Female
  Weight: 82 kg

DRUGS (3)
  1. VIOXX [Suspect]
     Indication: ARTHRALGIA
     Route: 048
     Dates: end: 20010525
  2. VIOXX [Suspect]
     Indication: ARTHROPATHY
     Route: 048
     Dates: end: 20010525
  3. SYNTHROID [Concomitant]
     Indication: THYROIDECTOMY
     Route: 065
     Dates: start: 20000101

REACTIONS (22)
  - ANXIETY [None]
  - DEPRESSION [None]
  - DISORIENTATION [None]
  - DYSPEPSIA [None]
  - ENDOMETRIAL HYPERTROPHY [None]
  - FATIGUE [None]
  - GASTROOESOPHAGEAL REFLUX DISEASE [None]
  - HYPERHIDROSIS [None]
  - HYPERTENSION [None]
  - MALAISE [None]
  - MENORRHAGIA [None]
  - MIGRAINE [None]
  - MYALGIA [None]
  - NAUSEA [None]
  - OVARIAN CYST [None]
  - POLYP [None]
  - SLEEP DISORDER [None]
  - SYNCOPE [None]
  - UPPER RESPIRATORY TRACT INFECTION [None]
  - UTERINE PAIN [None]
  - VERTIGO [None]
  - VOMITING [None]
